FAERS Safety Report 9772706 (Version 1)
Quarter: 2013Q4

REPORT INFORMATION
  Report Type: Spontaneous
  Country: US (occurrence: US)
  Receive Date: 20131219
  Receipt Date: 20131219
  Transmission Date: 20140711
  Serious: Yes (Hospitalization, Other)
  Sender: FDA-Public Use
  Company Number: US-TEVA-451839USA

PATIENT
  Age: 68 Year
  Sex: Female

DRUGS (6)
  1. CIPROFLOXACIN [Suspect]
     Indication: URINARY TRACT INFECTION
     Route: 048
  2. ATORVASTATIN [Concomitant]
     Dosage: 40MG DAILY
     Route: 048
  3. DILTIAZEM [Concomitant]
     Dosage: 360MG DAILY
     Route: 048
  4. ESOMEPRAZOLE [Concomitant]
     Dosage: 40MG DAILY
     Route: 048
  5. LOSARTAN [Concomitant]
     Dosage: 100MG DAILY
     Route: 048
  6. COUMADIN [Concomitant]
     Dosage: 4MG DAILY
     Route: 048

REACTIONS (1)
  - Inappropriate antidiuretic hormone secretion [Recovered/Resolved]
